FAERS Safety Report 25294037 (Version 2)
Quarter: 2025Q2

REPORT INFORMATION
  Report Type: Spontaneous
  Country: US (occurrence: US)
  Receive Date: 20250510
  Receipt Date: 20250602
  Transmission Date: 20250717
  Serious: No
  Sender: SANOFI AVENTIS
  Company Number: US-SA-2025SA124405

PATIENT
  Age: 57 Year
  Sex: Female

DRUGS (27)
  1. REZUROCK [Suspect]
     Active Substance: BELUMOSUDIL
     Indication: Graft versus host disease
     Dosage: 200 MG, QD
     Route: 048
     Dates: start: 202504
  2. ACIDOPHILUS [Concomitant]
     Active Substance: LACTOBACILLUS ACIDOPHILUS
  3. ACYCLOVIR [Concomitant]
     Active Substance: ACYCLOVIR
  4. ALBUTEROL [Concomitant]
     Active Substance: ALBUTEROL
  5. AZATHIOPRINE [Concomitant]
     Active Substance: AZATHIOPRINE
  6. CLOBETASOL [Concomitant]
     Active Substance: CLOBETASOL
  7. CORTEF [Concomitant]
     Active Substance: HYDROCORTISONE
  8. DEXAMETHASONE [Concomitant]
     Active Substance: DEXAMETHASONE
  9. DULOXETINE [Concomitant]
     Active Substance: DULOXETINE
  10. GABAPENTIN [Concomitant]
     Active Substance: GABAPENTIN
  11. MONTELUKAST [Concomitant]
     Active Substance: MONTELUKAST
  12. OFLOXACIN [Concomitant]
     Active Substance: OFLOXACIN
  13. OXYCODONE [Concomitant]
     Active Substance: OXYCODONE
  14. PREDNISOLONE [Concomitant]
     Active Substance: PREDNISOLONE
  15. SENNA S [Concomitant]
     Active Substance: DOCUSATE SODIUM\SENNOSIDES
  16. Oramagic plus [Concomitant]
  17. KETOCONAZOLE [Concomitant]
     Active Substance: KETOCONAZOLE
  18. SERTRALINE [Concomitant]
     Active Substance: SERTRALINE HYDROCHLORIDE
  19. SUCRALFATE [Concomitant]
     Active Substance: SUCRALFATE
  20. FLONASE [Concomitant]
     Active Substance: FLUTICASONE PROPIONATE
  21. FERROUS SULFATE [Concomitant]
     Active Substance: FERROUS SULFATE
  22. ERYTHROMYCIN [Concomitant]
     Active Substance: ERYTHROMYCIN
     Route: 047
  23. MS CONTIN [Concomitant]
     Active Substance: MORPHINE SULFATE
  24. VITAMIN B12 [Concomitant]
     Active Substance: CYANOCOBALAMIN
  25. SPIRIVA [Concomitant]
     Active Substance: TIOTROPIUM BROMIDE MONOHYDRATE
  26. VITAMIN B6 [Concomitant]
     Active Substance: PYRIDOXINE HYDROCHLORIDE
  27. HYDROCORTISONE [Concomitant]
     Active Substance: HYDROCORTISONE

REACTIONS (4)
  - Stomatitis [Not Recovered/Not Resolved]
  - Condition aggravated [Not Recovered/Not Resolved]
  - Dry mouth [Not Recovered/Not Resolved]
  - Fatigue [Unknown]

NARRATIVE: CASE EVENT DATE: 20250401
